FAERS Safety Report 4868840-2 (Version None)
Quarter: 2005Q4

REPORT INFORMATION
  Report Type: 
  Country: None (occurrence: None)
  Receive Date: 20051223
  Receipt Date: 20051215
  Transmission Date: 20060501
  Serious: Yes (Hospitalization, Other)
  Sender: FDA-Public Use
  Company Number: 2005160748

PATIENT
  Age: 8 Year
  Sex: Female

DRUGS (2)
  1. ZITHROMAX [Suspect]
     Indication: TONSILLITIS
     Dosage: 400 MG (1 IN 1 TOTAL), ORAL
     Route: 048
  2. PENICILLINE (BENZYLPENICILLIN SODIUM) [Suspect]
     Indication: TONSILLITIS
     Dosage: INTRAMUSCULAR
     Route: 030

REACTIONS (11)
  - ALANINE AMINOTRANSFERASE INCREASED [None]
  - ASPARTATE AMINOTRANSFERASE INCREASED [None]
  - AURICULAR SWELLING [None]
  - CYANOSIS [None]
  - ECCHYMOSIS [None]
  - EYELID OEDEMA [None]
  - FACE OEDEMA [None]
  - HAEMOGLOBIN DECREASED [None]
  - HYPERSENSITIVITY [None]
  - SKIN LESION [None]
  - SKIN NODULE [None]
